FAERS Safety Report 6309172-5 (Version None)
Quarter: 2009Q3

REPORT INFORMATION
  Report Type: 
  Country: None (occurrence: None)
  Receive Date: 20090814
  Receipt Date: 20090601
  Transmission Date: 20100115
  Serious: No
  Sender: FDA-Public Use
  Company Number: A0787717A

PATIENT
  Age: 69 Year
  Sex: Female

DRUGS (3)
  1. COREG CR [Suspect]
     Indication: DRUG USE FOR UNKNOWN INDICATION
     Dosage: 80MG PER DAY
     Route: 048
     Dates: start: 20011201
  2. ENALAPRIL MALEATE [Concomitant]
  3. SPIRONOLACTONE [Concomitant]

REACTIONS (1)
  - BLOOD CHOLESTEROL INCREASED [None]
